FAERS Safety Report 18371973 (Version 1)
Quarter: 2020Q4

REPORT INFORMATION
  Report Type: Report from Study
  Country: IT (occurrence: IT)
  Receive Date: 20201012
  Receipt Date: 20201012
  Transmission Date: 20210114
  Serious: Yes (Life-Threatening, Hospitalization, Other)
  Sender: FDA-Public Use
  Company Number: IT-TEVA-2020-IT-1837363

PATIENT
  Age: 13 Year
  Sex: Female

DRUGS (4)
  1. IFOSFAMIDE. [Suspect]
     Active Substance: IFOSFAMIDE
     Indication: ALVEOLAR RHABDOMYOSARCOMA
     Dosage: 3 G/M2, GIVEN ON DAYS 1 AND 2; RECEIVED 9 CYCLES. PART OF VIVA REGIMEN
     Route: 065
  2. ACTINOMYCIN D [Suspect]
     Active Substance: DACTINOMYCIN
     Indication: ALVEOLAR RHABDOMYOSARCOMA
     Dosage: 1.5 G/M2 (MAXIMUM 2MG), GIVEN ON DAY 1; RECEIVED 9 CYCLES. PART OF VIVA REGIMEN
     Route: 065
  3. VINCRISTINE [Suspect]
     Active Substance: VINCRISTINE
     Indication: ALVEOLAR RHABDOMYOSARCOMA
     Dosage: 1.5 G/M2 (MAXIMUM 2MG), GIVEN ON DAY 1; RECEIVED 9 CYCLES. PART OF VIVA REGIMEN
     Route: 065
  4. VINORELBINE [Suspect]
     Active Substance: VINORELBINE TARTRATE
     Indication: ALVEOLAR RHABDOMYOSARCOMA
     Dosage: 25G/M2 (MAXIMUM 2MG), GIVEN ON DAYS 8 AND 15, INFUSED OVER 6-10 MINUTES; RECEIVED 9 CYCLES+NARRATIVE
     Route: 041

REACTIONS (4)
  - Infection [Unknown]
  - Neutropenia [Unknown]
  - Anaemia [Unknown]
  - Off label use [Unknown]
